FAERS Safety Report 6506530-0 (Version None)
Quarter: 2009Q4

REPORT INFORMATION
  Report Type: 
  Country: None (occurrence: None)
  Receive Date: 20091221
  Receipt Date: 20091210
  Transmission Date: 20100525
  Serious: Yes (Hospitalization)
  Sender: FDA-Public Use
  Company Number: SE-JNJFOC-20091203315

PATIENT
  Age: 71 Year
  Sex: Male

DRUGS (2)
  1. REMICADE [Suspect]
     Indication: RHEUMATOID ARTHRITIS
     Route: 042
     Dates: start: 20020301, end: 20090615
  2. METHOTREXATE [Concomitant]

REACTIONS (4)
  - CEREBRAL DISORDER [None]
  - DYSPHAGIA [None]
  - NECROTISING FASCIITIS [None]
  - STREPTOCOCCAL SEPSIS [None]
